FAERS Safety Report 21547858 (Version 1)
Quarter: 2022Q4

REPORT INFORMATION
  Report Type: Spontaneous
  Country: TR (occurrence: TR)
  Receive Date: 20221103
  Receipt Date: 20221103
  Transmission Date: 20230113
  Serious: Yes (Other)
  Sender: FDA-Public Use
  Company Number: TR-ASTELLAS-2022US038558

PATIENT
  Age: 47 Year
  Sex: Female

DRUGS (2)
  1. ERLOTINIB [Suspect]
     Active Substance: ERLOTINIB
     Indication: Multiple sclerosis
     Dosage: UNK UNK, UNKNOWN FREQ.
     Route: 048
  2. OCREVUS [Suspect]
     Active Substance: OCRELIZUMAB
     Indication: Multiple sclerosis
     Dosage: 600 MG, OTHER (ONCE IN 6 MONTHS)
     Route: 042

REACTIONS (7)
  - Myocardial infarction [Unknown]
  - Hypertension [Unknown]
  - Dyspnoea [Unknown]
  - Erythema [Unknown]
  - Ill-defined disorder [Unknown]
  - Drug ineffective [Unknown]
  - Off label use [Unknown]
